FAERS Safety Report 7407759-X (Version None)
Quarter: 2011Q2

REPORT INFORMATION
  Report Type: 
  Country: None (occurrence: None)
  Receive Date: 20110401
  Receipt Date: 20110324
  Transmission Date: 20111010
  Serious: Yes (Other)
  Sender: FDA-Public Use
  Company Number: 2011SP007060

PATIENT
  Age: 69 Year
  Sex: Male

DRUGS (7)
  1. PAROXETINE HCL [Concomitant]
  2. HYDROCHLORIDE HYDRATE [Concomitant]
  3. ZOLPIDEM TARTRATE [Concomitant]
  4. PROMETHAZINE HYDROCHLORIDE [Concomitant]
  5. REFLEX (MIRTAZAPINE /01293201/) [Suspect]
     Indication: DEPRESSION
     Dosage: 7.5 MG; ONCE; PO
     Route: 048
     Dates: start: 20110106, end: 20110107
  6. REFLEX (MIRTAZAPINE /01293201/) [Suspect]
     Indication: INSOMNIA
     Dosage: 7.5 MG; ONCE; PO
     Route: 048
     Dates: start: 20110106, end: 20110107
  7. REFLEX (MIRTAZAPINE /01293201/) [Suspect]
     Indication: DECREASED APPETITE
     Dosage: 7.5 MG; ONCE; PO
     Route: 048
     Dates: start: 20110106, end: 20110107

REACTIONS (6)
  - DELIRIUM [None]
  - RIB FRACTURE [None]
  - FALL [None]
  - HALLUCINATION [None]
  - CONTUSION [None]
  - MEMORY IMPAIRMENT [None]
